FAERS Safety Report 8464839-8 (Version None)
Quarter: 2012Q2

REPORT INFORMATION
  Report Type: 
  Country: None (occurrence: None)
  Receive Date: 20120626
  Receipt Date: 20120614
  Transmission Date: 20120825
  Serious: Yes (Death)
  Sender: FDA-Public Use
  Company Number: US-SANOFI-AVENTIS-2012SA042932

PATIENT
  Age: 60 Year
  Sex: Male

DRUGS (2)
  1. LANTUS [Suspect]
     Indication: TYPE 2 DIABETES MELLITUS
     Dosage: DOSE:14 UNIT(S)
     Route: 058
     Dates: start: 20100801
  2. SOLOSTAR [Suspect]
     Indication: TYPE 2 DIABETES MELLITUS
     Dates: start: 20100801

REACTIONS (1)
  - MYOCARDIAL INFARCTION [None]
